FAERS Safety Report 7810926-4 (Version None)
Quarter: 2011Q4

REPORT INFORMATION
  Report Type: 
  Country: None (occurrence: None)
  Receive Date: 20111013
  Receipt Date: 20111010
  Transmission Date: 20120403
  Serious: No
  Sender: FDA-Public Use
  Company Number: US-PFIZER INC-2011242208

PATIENT
  Sex: Female
  Weight: 144.22 kg

DRUGS (2)
  1. ACETYLSALICYLIC ACID SRT [Suspect]
  2. IBUPROFEN [Suspect]

REACTIONS (1)
  - DRUG HYPERSENSITIVITY [None]
